FAERS Safety Report 5225867-9 (Version None)
Quarter: 2007Q1

REPORT INFORMATION
  Report Type: 
  Country: None (occurrence: None)
  Receive Date: 20070131
  Receipt Date: 20070131
  Transmission Date: 20070707
  Serious: Yes (Hospitalization)
  Sender: FDA-Public Use
  Company Number: None

PATIENT
  Age: 58 Year
  Sex: Male
  Weight: 164.7918 kg

DRUGS (1)
  1. GABAPENTIN [Suspect]
     Indication: NEUROPATHY PERIPHERAL
     Dosage: 2000  MG  TID PO
     Route: 048
     Dates: start: 20050811, end: 20070109

REACTIONS (3)
  - ASTHENIA [None]
  - MENTAL STATUS CHANGES [None]
  - RENAL FAILURE ACUTE [None]
